FAERS Safety Report 17566488 (Version 1)
Quarter: 2020Q1

REPORT INFORMATION
  Report Type: Spontaneous
  Country: CL (occurrence: CL)
  Receive Date: 20200320
  Receipt Date: 20200320
  Transmission Date: 20200409
  Serious: Yes (Hospitalization)
  Sender: FDA-Public Use
  Company Number: CL-MYLANLABS-2020M1029342

PATIENT
  Age: 38 Year
  Sex: Female
  Weight: 87 kg

DRUGS (9)
  1. VENLAFAXINE [Concomitant]
     Active Substance: VENLAFAXINE HYDROCHLORIDE
     Indication: MAJOR DEPRESSION
     Dosage: 300 MILLIGRAM, QD
     Route: 048
     Dates: start: 20181106
  2. LEPONEX [Suspect]
     Active Substance: CLOZAPINE
     Indication: MAJOR DEPRESSION
     Dosage: 250 MILLIGRAM, QD
     Route: 048
     Dates: start: 20180611
  3. LEPONEX [Suspect]
     Active Substance: CLOZAPINE
     Dosage: 100 MILLIGRAM, QD
     Route: 048
  4. DIAZEPAN [Concomitant]
     Active Substance: DIAZEPAM
     Indication: MAJOR DEPRESSION
     Dosage: 10 MILLIGRAM, QD
     Route: 048
     Dates: start: 20181106
  5. ZOPICLONE [Concomitant]
     Active Substance: ZOPICLONE
     Indication: MAJOR DEPRESSION
     Dosage: 75 MILLIGRAM, QD
     Route: 048
     Dates: start: 20181106
  6. TONARIL [Concomitant]
     Indication: MAJOR DEPRESSION
     Dosage: 2 MILLIGRAM, QD
     Route: 048
     Dates: start: 20181106
  7. CLONAZEPAN [Concomitant]
     Active Substance: CLONAZEPAM
     Indication: MAJOR DEPRESSION
     Dosage: 2 MILLIGRAM, QD
     Route: 048
     Dates: start: 20181106
  8. LEPONEX [Suspect]
     Active Substance: CLOZAPINE
     Dosage: 50 MILLIGRAM, QD
     Route: 048
  9. LITHIUM. [Concomitant]
     Active Substance: LITHIUM
     Indication: MAJOR DEPRESSION
     Dosage: 450 MILLIGRAM, QD
     Route: 048
     Dates: start: 20181106

REACTIONS (3)
  - Overdose [Recovered/Resolved]
  - Off label use [Not Recovered/Not Resolved]
  - Suicide attempt [Unknown]

NARRATIVE: CASE EVENT DATE: 20180611
